FAERS Safety Report 8475097 (Version 3)
Quarter: 2013Q4

REPORT INFORMATION
  Report Type: Spontaneous
  Country: IT (occurrence: IT)
  Receive Date: 20120323
  Receipt Date: 20131106
  Transmission Date: 20140711
  Serious: Yes (Hospitalization)
  Sender: FDA-Public Use
  Company Number: IT-009507513-1203ITA00036

PATIENT
  Age: 68 Year
  Sex: Female

DRUGS (6)
  1. LOSAZID [Suspect]
     Dosage: 100-25
     Route: 048
     Dates: start: 20120220, end: 20120220
  2. ATENOLOL [Concomitant]
     Dosage: 50 MG, UNK
     Route: 048
  3. EUTIROX [Concomitant]
     Dosage: 125 ?G, UNK
     Route: 048
  4. TOTALIP [Concomitant]
     Dosage: 20 MG, UNK
     Route: 048
  5. DICLOFENAC SODIUM [Concomitant]
     Route: 047
  6. VIGAMOX [Concomitant]
     Dosage: UNK MG/ML, UNK
     Route: 047

REACTIONS (2)
  - Acute respiratory failure [Recovered/Resolved]
  - Pulmonary oedema [Recovered/Resolved]
